FAERS Safety Report 24202323 (Version 2)
Quarter: 2024Q3

REPORT INFORMATION
  Report Type: Spontaneous
  Country: CN (occurrence: CN)
  Receive Date: 20240812
  Receipt Date: 20240823
  Transmission Date: 20241016
  Serious: Yes (Hospitalization, Other)
  Sender: ALKEM
  Company Number: CN-ALKEM LABORATORIES LIMITED-CN-ALKEM-2024-17949

PATIENT
  Age: 14 Year
  Sex: Female

DRUGS (1)
  1. CEFIXIME [Suspect]
     Active Substance: CEFIXIME
     Indication: Product used for unknown indication
     Dosage: 9 DOSAGE FORM (SINGLE DOSE, CAPSULE)
     Route: 048
     Dates: start: 20240130

REACTIONS (7)
  - Loss of consciousness [Unknown]
  - Alcohol intolerance [Unknown]
  - Somnolence [Unknown]
  - Peripheral coldness [Unknown]
  - Sinus arrhythmia [Unknown]
  - Overdose [Unknown]
  - Toxicity to various agents [Unknown]
